FAERS Safety Report 4829997-2 (Version None)
Quarter: 2005Q4

REPORT INFORMATION
  Report Type: 
  Country: None (occurrence: None)
  Receive Date: 20051114
  Receipt Date: 20051103
  Transmission Date: 20060501
  Serious: Yes (Hospitalization)
  Sender: FDA-Public Use
  Company Number: 2005-11-0133

PATIENT
  Sex: Male

DRUGS (5)
  1. TEMODAL [Suspect]
     Indication: GLIOBLASTOMA MULTIFORME
     Dosage: 200 MG/M^2 ORAL
     Route: 048
  2. RADIATION THERAPY [Concomitant]
  3. PACLITAXEL [Concomitant]
  4. VINBLASTINE [Concomitant]
  5. CISPLATIN [Concomitant]

REACTIONS (5)
  - ADENOIDITIS [None]
  - INFECTION [None]
  - NEUTROPENIA [None]
  - PYREXIA [None]
  - THROMBOCYTOPENIA [None]
